FAERS Safety Report 8168649-0 (Version None)
Quarter: 2012Q1

REPORT INFORMATION
  Report Type: 
  Country: None (occurrence: None)
  Receive Date: 20120202
  Receipt Date: 20120207
  Transmission Date: 20120608
  Serious: Yes (Hospitalization)
  Sender: FDA-Public Use
  Company Number: DSJ-2011-25121

PATIENT
  Age: 62 Year
  Sex: Male

DRUGS (5)
  1. ALPRAZOLAM [Concomitant]
  2. RABEPRAZOLE (RABEPRAZOLE) (RABEPRAZOLE) [Concomitant]
  3. CIPROFIBRATE (CIPROFIBRATE) (CIPROFIBRATE) [Concomitant]
  4. BENICAR HCT [Suspect]
     Indication: HYPERTENSION
     Dosage: 20/12.5 MG (1 IN 1 D),PER ORAL
     Route: 048
     Dates: start: 20110601, end: 20111201
  5. CHEMOTHERAPY [Concomitant]

REACTIONS (2)
  - NEOPLASM [None]
  - HYPOTENSION [None]
